FAERS Safety Report 9934965 (Version 1)
Quarter: 2014Q1

REPORT INFORMATION
  Report Type: Report from Study
  Country: BR (occurrence: BR)
  Receive Date: 20140228
  Receipt Date: 20140228
  Transmission Date: 20141002
  Serious: Yes (Other)
  Sender: FDA-Public Use
  Company Number: PHHY2014BR024050

PATIENT
  Sex: Female

DRUGS (5)
  1. EXELON [Suspect]
     Indication: TREMOR
     Dosage: 2 DF, DAILY (1.5MG)
     Route: 048
     Dates: start: 201309, end: 201310
  2. EXELON [Suspect]
     Indication: AGGRESSION
     Dosage: 2 DF, DAILY (3 MG)
     Route: 048
     Dates: start: 201310, end: 201311
  3. EXELON [Suspect]
     Indication: OFF LABEL USE
     Dosage: 2 DF, DAILY (4.5 MG)
     Route: 048
     Dates: start: 201311, end: 201312
  4. ANTIBIOTICS [Suspect]
     Indication: BRONCHOPNEUMONIA
     Dosage: UNK UKN, UNK
  5. ANTIBIOTICS [Suspect]
     Indication: URINARY TRACT INFECTION

REACTIONS (5)
  - Gastrointestinal disorder [Recovering/Resolving]
  - Nausea [Recovering/Resolving]
  - Diarrhoea [Recovering/Resolving]
  - Vomiting [Recovering/Resolving]
  - Body height decreased [Unknown]
